FAERS Safety Report 5354588-7 (Version None)
Quarter: 2007Q2

REPORT INFORMATION
  Report Type: 
  Country: None (occurrence: None)
  Receive Date: 20070611
  Receipt Date: 20070524
  Transmission Date: 20071010
  Serious: Yes (Hospitalization, Other)
  Sender: FDA-Public Use
  Company Number: DSA_29964_2007

PATIENT
  Age: 43 Year
  Sex: Female

DRUGS (6)
  1. ENALAPRIL MALEATE [Suspect]
     Indication: HYPERTENSION
     Dosage: ORAL
     Route: 048
  2. BETA BLOCKING AGENTS [Concomitant]
  3. ASAFLOW [Concomitant]
  4. PLAVIX [Concomitant]
  5. DIURETICS [Concomitant]
  6. ZOCOR [Concomitant]

REACTIONS (1)
  - CORONARY ARTERY STENOSIS [None]
